FAERS Safety Report 10384949 (Version 2)
Quarter: 2014Q4

REPORT INFORMATION
  Report Type: Spontaneous
  Country: US (occurrence: US)
  Receive Date: 20140814
  Receipt Date: 20141201
  Transmission Date: 20150528
  Serious: Yes (Other)
  Sender: FDA-Public Use
  Company Number: US-BAYER-2014-119071

PATIENT
  Age: 34 Year
  Sex: Female
  Weight: 57.6 kg

DRUGS (1)
  1. MIRENA [Suspect]
     Active Substance: LEVONORGESTREL
     Indication: CONTRACEPTION
     Dosage: 20 MCG/24HR, CONT
     Route: 015
     Dates: start: 20120625, end: 20140805

REACTIONS (4)
  - Device difficult to use [None]
  - Device difficult to use [None]
  - Uterine perforation [Recovered/Resolved]
  - Off label use [None]

NARRATIVE: CASE EVENT DATE: 2014
